FAERS Safety Report 17104530 (Version 1)
Quarter: 2019Q4

REPORT INFORMATION
  Report Type: Spontaneous
  Country: US (occurrence: US)
  Receive Date: 20191203
  Receipt Date: 20191203
  Transmission Date: 20200122
  Serious: No
  Sender: FDA-Public Use
  Company Number: US-UCBSA-2018003340

PATIENT
  Age: 2 Year
  Sex: Female

DRUGS (5)
  1. PHENOBARBITAL. [Concomitant]
     Active Substance: PHENOBARBITAL
     Indication: STATUS EPILEPTICUS
     Dosage: UNKNOWN DOSE
  2. FOSPHENYTOIN [Concomitant]
     Active Substance: FOSPHENYTOIN
     Indication: STATUS EPILEPTICUS
     Dosage: UNKNOWN DOSE
  3. LEVETIRACETAM. [Suspect]
     Active Substance: LEVETIRACETAM
     Indication: OFF LABEL USE
  4. IMMUNOGLOBULIN [Concomitant]
     Indication: PLEOCYTOSIS
     Dosage: UNKNOWN DOSE
     Route: 042
  5. LEVETIRACETAM. [Suspect]
     Active Substance: LEVETIRACETAM
     Indication: STATUS EPILEPTICUS
     Dosage: UNKNOWN DOSE

REACTIONS (1)
  - No adverse event [Unknown]
